FAERS Safety Report 21413649 (Version 2)
Quarter: 2022Q4

REPORT INFORMATION
  Report Type: Report from Study
  Country: US (occurrence: US)
  Receive Date: 20221006
  Receipt Date: 20221111
  Transmission Date: 20230112
  Serious: Yes (Hospitalization, Other)
  Sender: FDA-Public Use
  Company Number: US-ABBVIE-22K-163-4510545-00

PATIENT
  Sex: Male

DRUGS (1)
  1. SKYRIZI [Suspect]
     Active Substance: RISANKIZUMAB-RZAA
     Indication: Psoriasis
     Route: 058

REACTIONS (10)
  - Cardiac arrest [Unknown]
  - Arthropod bite [Recovered/Resolved]
  - Food allergy [Not Recovered/Not Resolved]
  - Anaphylactic reaction [Recovered/Resolved]
  - Lip swelling [Recovered/Resolved]
  - Cough [Recovered/Resolved]
  - Limb injury [Recovered/Resolved]
  - Food allergy [Recovered/Resolved with Sequelae]
  - Swelling [Recovered/Resolved]
  - Food allergy [Unknown]

NARRATIVE: CASE EVENT DATE: 20220101
